FAERS Safety Report 8834351 (Version 1)
Quarter: 2012Q4

REPORT INFORMATION
  Report Type: 
  Country: US (occurrence: US)
  Receive Date: 20121010
  Receipt Date: 20121010
  Transmission Date: 20130627
  Serious: Yes (Other)
  Sender: FDA-Public Use
  Company Number: US-PFIZER INC-HQWYE584123FEB07

PATIENT
  Age: 56 Year
  Sex: Female

DRUGS (5)
  1. PREMPRO [Suspect]
     Indication: HORMONE REPLACEMENT THERAPY
     Dosage: UNK
     Route: 048
     Dates: start: 1997, end: 2004
  2. PREMARIN [Suspect]
     Indication: HORMONE REPLACEMENT THERAPY
     Dosage: UNK
     Route: 048
     Dates: start: 1997, end: 2004
  3. MEDROXYPROGESTERONE ACETATE [Suspect]
     Indication: HORMONE REPLACEMENT THERAPY
     Dosage: UNK
  4. PROVERA [Suspect]
     Dosage: UNK
  5. MEDROXYPROGESTERONE [Suspect]
     Dosage: UNK
     Route: 048
     Dates: start: 2000, end: 2003

REACTIONS (1)
  - Breast cancer female [Unknown]
